FAERS Safety Report 5805648-5 (Version None)
Quarter: 2008Q3

REPORT INFORMATION
  Report Type: 
  Country: None (occurrence: None)
  Receive Date: 20080710
  Receipt Date: 20080505
  Transmission Date: 20090109
  Serious: No
  Sender: FDA-Public Use
  Company Number: A0721361A

PATIENT
  Age: 65 Year
  Sex: Female

DRUGS (14)
  1. TYKERB [Suspect]
     Indication: BREAST CANCER
     Dosage: 1250MG PER DAY
     Route: 048
     Dates: start: 20070606
  2. XELODA [Suspect]
     Indication: BREAST CANCER
     Dosage: 2000MG TWICE PER DAY
     Route: 048
     Dates: start: 20070606
  3. CALCIUM WITH VITAMIN D [Concomitant]
  4. GABAPENTIN [Concomitant]
  5. NABUMETONE [Concomitant]
  6. K-TAB [Concomitant]
  7. DILTIAZEM [Concomitant]
  8. LISINOPRIL [Concomitant]
  9. GEMFIBROZIL [Concomitant]
  10. PAROXETINE HCL [Concomitant]
  11. HYDROCODONE [Concomitant]
  12. MORPHINE [Concomitant]
  13. LASIX [Concomitant]
  14. FISH OIL [Concomitant]

REACTIONS (3)
  - DIARRHOEA [None]
  - SKIN EXFOLIATION [None]
  - TUMOUR MARKER INCREASED [None]
